FAERS Safety Report 24837637 (Version 1)
Quarter: 2025Q1

REPORT INFORMATION
  Report Type: Spontaneous
  Country: GB (occurrence: GB)
  Receive Date: 20250113
  Receipt Date: 20250113
  Transmission Date: 20250408
  Serious: Yes (Other)
  Sender: PFIZER
  Company Number: None

PATIENT
  Age: 27 Year
  Sex: Female
  Weight: 53 kg

DRUGS (1)
  1. RIMEGEPANT [Suspect]
     Active Substance: RIMEGEPANT
     Indication: Migraine
     Dosage: 75 MG EVERY OTHER DAY, AND AS NEEDED WITH AN ATTACK IF NOT TAKEN ON THAT DAY
     Dates: start: 202407

REACTIONS (10)
  - Hand dermatitis [Not Recovered/Not Resolved]
  - Eczema eyelids [Not Recovered/Not Resolved]
  - Pruritus [Not Recovered/Not Resolved]
  - Skin exfoliation [Not Recovered/Not Resolved]
  - Dry skin [Not Recovered/Not Resolved]
  - Erythema [Not Recovered/Not Resolved]
  - Pain of skin [Not Recovered/Not Resolved]
  - Fatigue [Not Recovered/Not Resolved]
  - Disturbance in attention [Unknown]
  - Somnolence [Unknown]

NARRATIVE: CASE EVENT DATE: 20240801
